FAERS Safety Report 6881382-8 (Version None)
Quarter: 2010Q3

REPORT INFORMATION
  Report Type: 
  Country: None (occurrence: None)
  Receive Date: 20100728
  Receipt Date: 20100728
  Transmission Date: 20110219
  Serious: Yes (Hospitalization)
  Sender: FDA-Public Use
  Company Number: None

PATIENT
  Sex: Male
  Weight: 92.8 kg

DRUGS (2)
  1. TARCEVA [Suspect]
     Dosage: 2800 MG
  2. GEMCITABINE HYDROCHLORIDE [Suspect]
     Dosage: 6270 MG

REACTIONS (3)
  - LOSS OF CONSCIOUSNESS [None]
  - PRESYNCOPE [None]
  - SYNCOPE [None]
